FAERS Safety Report 13242787 (Version 1)
Quarter: 2017Q1

REPORT INFORMATION
  Report Type: Spontaneous
  Country: US (occurrence: US)
  Receive Date: 20170216
  Receipt Date: 20170216
  Transmission Date: 20170428
  Serious: Yes (Other)
  Sender: FDA-Public Use
  Company Number: None

PATIENT
  Age: 65 Year
  Sex: Male
  Weight: 76.95 kg

DRUGS (4)
  1. MULTIVITAMIN MINERAL [Concomitant]
  2. LOW DOSE ASPIRIN [Concomitant]
     Active Substance: ASPIRIN
  3. FAMOTIDINE. [Suspect]
     Active Substance: FAMOTIDINE
     Indication: DYSPEPSIA
     Dosage: ?          QUANTITY:1 TABLET(S);?
     Route: 048
     Dates: start: 20161028, end: 20170202
  4. ANTACID TABLETS (CALCIUM CARBONATE) [Concomitant]

REACTIONS (1)
  - Confusional state [None]

NARRATIVE: CASE EVENT DATE: 20161215
